FAERS Safety Report 4828108-7 (Version None)
Quarter: 2005Q4

REPORT INFORMATION
  Report Type: 
  Country: None (occurrence: None)
  Receive Date: 20051110
  Receipt Date: 20051026
  Transmission Date: 20060501
  Serious: Yes (Other)
  Sender: FDA-Public Use
  Company Number: 2005141504

PATIENT

DRUGS (2)
  1. SOLU-CORTEF [Suspect]
     Indication: ILL-DEFINED DISORDER
     Dosage: INTRAVENOUS
     Route: 042
  2. PREDNISONE [Suspect]
     Indication: ILL-DEFINED DISORDER

REACTIONS (3)
  - BRONCHIAL OEDEMA [None]
  - DYSPNOEA [None]
  - HYPERSENSITIVITY [None]
